FAERS Safety Report 4785672-4 (Version None)
Quarter: 2005Q3

REPORT INFORMATION
  Report Type: 
  Country: None (occurrence: None)
  Receive Date: 20050929
  Receipt Date: 20050915
  Transmission Date: 20060218
  Serious: Yes (Other)
  Sender: FDA-Public Use
  Company Number: 143163USA

PATIENT

DRUGS (1)
  1. PROPOFOL [Suspect]
     Dosage: NI
     Dates: start: 20050901

REACTIONS (1)
  - PROPOFOL INFUSION SYNDROME [None]
